FAERS Safety Report 24549977 (Version 1)
Quarter: 2024Q4

REPORT INFORMATION
  Report Type: Spontaneous
  Country: US (occurrence: None)
  Receive Date: 20241024
  Receipt Date: 20241024
  Transmission Date: 20250115
  Serious: Yes (Other)
  Sender: Public
  Company Number: None

PATIENT
  Age: 66 Year
  Sex: Male
  Weight: 104.4 kg

DRUGS (3)
  1. XTANDI [Suspect]
     Active Substance: ENZALUTAMIDE
     Indication: Prostate cancer
     Dosage: FREQUENCY : DAILY;?
     Route: 048
     Dates: start: 20240906
  2. KLONOPIN [Concomitant]
     Active Substance: CLONAZEPAM
  3. ACETAMINOPHEN\OXYCODONE HYDROCHLORIDE [Concomitant]
     Active Substance: ACETAMINOPHEN\OXYCODONE HYDROCHLORIDE

REACTIONS (9)
  - Chest pain [None]
  - Diarrhoea [None]
  - Dyspnoea [None]
  - Dry mouth [None]
  - Weight decreased [None]
  - Dysarthria [None]
  - Myocardial infarction [None]
  - Headache [None]
  - Skin burning sensation [None]

NARRATIVE: CASE EVENT DATE: 20241023
